FAERS Safety Report 9391525 (Version 2)
Quarter: 2013Q3

REPORT INFORMATION
  Report Type: Spontaneous
  Country: US (occurrence: US)
  Receive Date: 20130709
  Receipt Date: 20130801
  Transmission Date: 20140515
  Serious: Yes (Hospitalization, Other)
  Sender: FDA-Public Use
  Company Number: US-CELGENEUS-163-21880-13030689

PATIENT
  Age: 86 Year
  Sex: Male

DRUGS (33)
  1. REVLIMID [Suspect]
     Indication: PLASMA CELL MYELOMA
     Dosage: 10 MILLIGRAM
     Route: 048
     Dates: start: 20130226, end: 20130303
  2. OMEPRAZOLE [Concomitant]
     Indication: PRODUCT USED FOR UNKNOWN INDICATION
     Dosage: 20MG-40MG
     Route: 048
  3. ALLOPURINOL [Concomitant]
     Indication: PRODUCT USED FOR UNKNOWN INDICATION
     Dosage: 100 MILLIGRAM
     Route: 048
     Dates: start: 20120316
  4. METOPROLOL SUCCINATE [Concomitant]
     Indication: PRODUCT USED FOR UNKNOWN INDICATION
     Dosage: 25 MILLIGRAM
     Route: 048
     Dates: start: 20121129
  5. METOPROLOL SUCCINATE [Concomitant]
     Dosage: 50 MILLIGRAM
     Route: 048
  6. RYTHMOL [Concomitant]
     Indication: PRODUCT USED FOR UNKNOWN INDICATION
     Dosage: 225 MILLIGRAM
     Route: 048
     Dates: start: 20121129
  7. TRAVATAN Z [Concomitant]
     Indication: PRODUCT USED FOR UNKNOWN INDICATION
     Dosage: .004 PERCENT
     Route: 047
  8. TRAVATAN Z [Concomitant]
     Dosage: 2.5 MILLILITER
     Route: 047
  9. DEXAMETHASONE [Concomitant]
     Indication: PRODUCT USED FOR UNKNOWN INDICATION
     Route: 048
  10. DEXAMETHASONE [Concomitant]
     Dosage: 4 MILLIGRAM
     Route: 048
     Dates: start: 20130323
  11. DEXAMETHASONE [Concomitant]
     Route: 048
     Dates: start: 20130410
  12. DEXAMETHASONE [Concomitant]
     Route: 048
     Dates: start: 20130508
  13. ALPHAGAN [Concomitant]
     Indication: PRODUCT USED FOR UNKNOWN INDICATION
     Dosage: .2 PERCENT
     Route: 047
     Dates: start: 20121129
  14. BETIMOL [Concomitant]
     Indication: PRODUCT USED FOR UNKNOWN INDICATION
     Dosage: 1 PERCENT
     Route: 047
  15. BETIMOL [Concomitant]
     Dosage: .5 PERCENT
     Route: 047
     Dates: start: 20120316
  16. INTEGRA [Concomitant]
     Indication: PRODUCT USED FOR UNKNOWN INDICATION
     Dosage: 125 MILLIGRAM
     Route: 048
  17. INTEGRA [Concomitant]
     Dosage: 62.5 - 40 - 3MG
     Route: 048
     Dates: start: 20121202
  18. VELCADE [Concomitant]
     Indication: PRODUCT USED FOR UNKNOWN INDICATION
     Route: 058
     Dates: start: 2013
  19. CRANBERRY CONCENTRATE [Concomitant]
     Indication: PRODUCT USED FOR UNKNOWN INDICATION
     Dosage: 1 CAPSULE
     Route: 048
  20. DIGOXIN [Concomitant]
     Indication: PRODUCT USED FOR UNKNOWN INDICATION
     Dosage: 125 MICROGRAM
     Route: 048
  21. DIGOXIN [Concomitant]
     Dosage: .125 MILLIGRAM
     Route: 048
     Dates: start: 20121202
  22. DULCOLAX [Concomitant]
     Indication: PRODUCT USED FOR UNKNOWN INDICATION
     Dosage: 5 MILLIGRAM
     Route: 048
  23. PRAMIPEXOLE DIHYDROCHLORIDE [Concomitant]
     Indication: PRODUCT USED FOR UNKNOWN INDICATION
     Dosage: .25 MILLIGRAM
     Route: 048
  24. PRAMIPEXOLE DIHYDROCHLORIDE [Concomitant]
     Dosage: .75 MILLIGRAM
     Route: 048
     Dates: start: 20130303
  25. OXYGEN [Concomitant]
     Indication: PRODUCT USED FOR UNKNOWN INDICATION
     Route: 045
  26. DUONEB [Concomitant]
     Indication: PRODUCT USED FOR UNKNOWN INDICATION
     Route: 065
  27. TRAMADOL [Concomitant]
     Indication: PRODUCT USED FOR UNKNOWN INDICATION
     Route: 065
  28. PULMOCARE [Concomitant]
     Indication: PRODUCT USED FOR UNKNOWN INDICATION
     Dosage: 1 CAN
     Route: 065
  29. COMBIVENT RESPIMAT [Concomitant]
     Indication: PRODUCT USED FOR UNKNOWN INDICATION
     Dosage: 20 - 100MCG/ACT
     Route: 055
     Dates: start: 20130303
  30. ATROVENT [Concomitant]
     Indication: PRODUCT USED FOR UNKNOWN INDICATION
     Dosage: 10 MILLILITER
     Route: 055
     Dates: start: 20130303
  31. ALBUTEROL SULFATE [Concomitant]
     Indication: PRODUCT USED FOR UNKNOWN INDICATION
     Dosage: 2 MILLILITER
     Route: 055
     Dates: start: 20121202
  32. ALBUTEROL SULFATE [Concomitant]
     Dosage: 3 MILLILITER
     Route: 055
     Dates: start: 20130528, end: 20130528
  33. NORMAL SALINE [Concomitant]
     Indication: PRODUCT USED FOR UNKNOWN INDICATION
     Dosage: 1200 MILLILITER

REACTIONS (6)
  - Abasia [Unknown]
  - Movement disorder [Unknown]
  - Hallucination [Not Recovered/Not Resolved]
  - Dysarthria [Unknown]
  - Hypersensitivity [Recovered/Resolved]
  - Transient ischaemic attack [Recovered/Resolved]
